FAERS Safety Report 19473452 (Version 2)
Quarter: 2021Q3

REPORT INFORMATION
  Report Type: Spontaneous
  Country: US (occurrence: US)
  Receive Date: 20210629
  Receipt Date: 20210709
  Transmission Date: 20211014
  Serious: No
  Sender: FDA-Public Use
  Company Number: US-ELI_LILLY_AND_COMPANY-US202106012945

PATIENT
  Sex: Male

DRUGS (1)
  1. TRULICITY [Suspect]
     Active Substance: DULAGLUTIDE
     Indication: DIABETES MELLITUS
     Dosage: 1.5 MG, UNKNOWN
     Route: 058

REACTIONS (7)
  - Product administered at inappropriate site [Unknown]
  - Abdominal distension [Unknown]
  - Dry mouth [Unknown]
  - Blood glucose increased [Unknown]
  - Diarrhoea [Unknown]
  - Nausea [Unknown]
  - Stress [Unknown]
